FAERS Safety Report 4970641-1 (Version None)
Quarter: 2006Q2

REPORT INFORMATION
  Report Type: 
  Country: None (occurrence: None)
  Receive Date: 20060412
  Receipt Date: 20060105
  Transmission Date: 20061013
  Serious: Yes (Death, Hospitalization)
  Sender: FDA-Public Use
  Company Number: US-MERCK-0601USA00598

PATIENT
  Sex: Female
  Weight: 58 kg

DRUGS (1)
  1. VIOXX [Suspect]
     Route: 048

REACTIONS (5)
  - BLOOD PRESSURE INCREASED [None]
  - CEREBRAL INFARCTION [None]
  - CEREBRAL ISCHAEMIA [None]
  - CEREBROVASCULAR ACCIDENT [None]
  - DEATH [None]
